FAERS Safety Report 16079872 (Version 3)
Quarter: 2020Q2

REPORT INFORMATION
  Report Type: Spontaneous
  Country: CA (occurrence: CA)
  Receive Date: 20190315
  Receipt Date: 20200625
  Transmission Date: 20200713
  Serious: Yes (Other)
  Sender: FDA-Public Use
  Company Number: CA-SAMSUNG BIOEPIS-SB-2019-06197

PATIENT
  Age: 40 Year
  Sex: Female

DRUGS (10)
  1. ACETAMINOPHEN OXYCODON HYDROCHLORIDE [Concomitant]
     Indication: BACK PAIN
     Route: 048
  2. ACETAMINOPHEN. [Concomitant]
     Active Substance: ACETAMINOPHEN
     Indication: PRODUCT USED FOR UNKNOWN INDICATION
     Dosage: UNKNOWN
     Route: 065
  3. METHOTREXATE. [Concomitant]
     Active Substance: METHOTREXATE
     Indication: CONDITION AGGRAVATED
     Route: 065
  4. METHOTREXATE. [Concomitant]
     Active Substance: METHOTREXATE
     Route: 048
  5. INFLIXIMAB [Suspect]
     Active Substance: INFLIXIMAB
     Route: 042
  6. METHOTREXATE. [Concomitant]
     Active Substance: METHOTREXATE
     Route: 048
  7. TAPENTADOL [Concomitant]
     Active Substance: TAPENTADOL
     Route: 065
  8. ACETAMINOPHEN OXYCODON HYDROCHLORIDE [Concomitant]
     Route: 048
  9. TAPENTADOL [Concomitant]
     Active Substance: TAPENTADOL
     Indication: PAIN
     Route: 065
  10. INFLIXIMAB [Suspect]
     Active Substance: INFLIXIMAB
     Indication: CROHN^S DISEASE
     Route: 042

REACTIONS (17)
  - Hypertension [Unknown]
  - Pyrexia [Unknown]
  - Therapeutic response shortened [Unknown]
  - Polyarthritis [Unknown]
  - Malaise [Unknown]
  - Pain [Unknown]
  - Weight increased [Unknown]
  - Underdose [Unknown]
  - Condition aggravated [Unknown]
  - Nasopharyngitis [Unknown]
  - Drug ineffective [Unknown]
  - Off label use [Unknown]
  - Heart rate increased [Unknown]
  - Product use issue [Not Recovered/Not Resolved]
  - Headache [Unknown]
  - Nasal congestion [Unknown]
  - Inappropriate schedule of product administration [Unknown]
